FAERS Safety Report 11088575 (Version 1)
Quarter: 2015Q2

REPORT INFORMATION
  Report Type: Spontaneous
  Country: DE (occurrence: DE)
  Receive Date: 20150504
  Receipt Date: 20150504
  Transmission Date: 20150821
  Serious: Yes (Hospitalization)
  Sender: FDA-Public Use
  Company Number: DE-ELI_LILLY_AND_COMPANY-DE201504007246

PATIENT
  Age: 50 Year
  Sex: Female

DRUGS (5)
  1. CYMBALTA [Concomitant]
     Active Substance: DULOXETINE HYDROCHLORIDE
     Dosage: 60 MG, UNKNOWN
  2. TAVOR [Concomitant]
     Active Substance: LORAZEPAM
     Dosage: 3MG, DAILY
  3. ZYPREXA [Suspect]
     Active Substance: OLANZAPINE
     Dosage: 15MG DAILY
     Dates: end: 20100211
  4. ZYPREXA [Suspect]
     Active Substance: OLANZAPINE
     Indication: PRODUCT USED FOR UNKNOWN INDICATION
     Dosage: 10MG DAILY
     Dates: start: 20091008
  5. TAVOR [Concomitant]
     Active Substance: LORAZEPAM
     Dosage: 1MG, DAILY
     Dates: start: 20091028

REACTIONS (5)
  - Psychiatric decompensation [Unknown]
  - Drug withdrawal syndrome [Unknown]
  - Anxiety [Unknown]
  - Rash [Recovering/Resolving]
  - Delusion [Unknown]

NARRATIVE: CASE EVENT DATE: 20100115
